FAERS Safety Report 9143388 (Version 1)
Quarter: 2013Q1

REPORT INFORMATION
  Report Type: Spontaneous
  Country: US (occurrence: US)
  Receive Date: 20130306
  Receipt Date: 20130306
  Transmission Date: 20140127
  Serious: No
  Sender: FDA-Public Use
  Company Number: US-ENDO PHARMACEUTICALS INC.-OPER20120174

PATIENT
  Age: 56 Year
  Sex: Female
  Weight: 57.2 kg

DRUGS (1)
  1. OPANA ER 20MG [Suspect]
     Indication: PAIN
     Dosage: 20 MG
     Route: 048
     Dates: end: 20120218

REACTIONS (2)
  - Sluggishness [Not Recovered/Not Resolved]
  - Malaise [Not Recovered/Not Resolved]
